FAERS Safety Report 9209032 (Version 2)
Quarter: 2023Q1

REPORT INFORMATION
  Report Type: Report from Study
  Country: US (occurrence: US)
  Receive Date: 20130404
  Receipt Date: 20230106
  Transmission Date: 20230418
  Serious: No
  Sender: FDA-Public Use
  Company Number: US-009507513-1304USA001723

PATIENT
  Sex: Female

DRUGS (2)
  1. JANUVIA [Suspect]
     Active Substance: SITAGLIPTIN PHOSPHATE
     Dosage: TAKING JANUVIA IN THE PAST
     Route: 048
  2. JANUVIA [Suspect]
     Active Substance: SITAGLIPTIN PHOSPHATE
     Dosage: SWITCH BACK FROM ^PEN^ TO JANUVIA
     Route: 048

REACTIONS (3)
  - Tenderness [Unknown]
  - Drug ineffective [Unknown]
  - Malaise [Unknown]
